FAERS Safety Report 17376452 (Version 1)
Quarter: 2020Q1

REPORT INFORMATION
  Report Type: Spontaneous
  Country: DE (occurrence: DE)
  Receive Date: 20200206
  Receipt Date: 20200206
  Transmission Date: 20200409
  Serious: Yes (Other)
  Sender: FDA-Public Use
  Company Number: NVSC2020DE029925

PATIENT
  Age: 48 Year
  Sex: Male

DRUGS (4)
  1. IBUPROFEN. [Suspect]
     Active Substance: IBUPROFEN
     Indication: PRODUCT USED FOR UNKNOWN INDICATION
     Route: 065
  2. AVANZ [Concomitant]
     Indication: IMMUNE TOLERANCE INDUCTION
     Dosage: UNK
     Route: 065
  3. DEPIGOID [Concomitant]
     Indication: IMMUNE TOLERANCE INDUCTION
     Dosage: UNK
     Route: 065
  4. NOVALGIN [Concomitant]
     Indication: PRODUCT USED FOR UNKNOWN INDICATION
     Dosage: UNK
     Route: 065

REACTIONS (10)
  - Neuroma [Unknown]
  - Synovitis [Unknown]
  - General physical health deterioration [Unknown]
  - Drug ineffective [Unknown]
  - Tendonitis [Unknown]
  - Joint stiffness [Unknown]
  - Myalgia [Unknown]
  - Muscle twitching [Unknown]
  - Nervous system disorder [Unknown]
  - Hypermobility syndrome [Unknown]

NARRATIVE: CASE EVENT DATE: 2017
